FAERS Safety Report 24653907 (Version 1)
Quarter: 2024Q4

REPORT INFORMATION
  Report Type: Other
  Country: US (occurrence: US)
  Receive Date: 20241122
  Receipt Date: 20241122
  Transmission Date: 20250115
  Serious: No
  Sender: TRAVERE THERAPEUTICS
  Company Number: US-TRAVERE-2024TVT01193

PATIENT
  Age: 77 Year
  Sex: Male

DRUGS (11)
  1. FILSPARI [Suspect]
     Active Substance: SPARSENTAN
     Indication: IgA nephropathy
     Route: 048
     Dates: start: 20241017
  2. FILSPARI [Suspect]
     Active Substance: SPARSENTAN
     Route: 048
     Dates: start: 20241031
  3. ASPIRIN [Concomitant]
     Active Substance: ASPIRIN
  4. CARVEDILOL [Concomitant]
     Active Substance: CARVEDILOL
  5. DILTIAZEM [Concomitant]
     Active Substance: DILTIAZEM
  6. HYDRALAZINE [Concomitant]
     Active Substance: HYDRALAZINE HYDROCHLORIDE
  7. NOVOLOG [Concomitant]
     Active Substance: INSULIN ASPART
  8. LANTUS [Concomitant]
     Active Substance: INSULIN GLARGINE
  9. ROSUVASTATIN [Concomitant]
     Active Substance: ROSUVASTATIN
  10. TARPEYO [Concomitant]
     Active Substance: BUDESONIDE
  11. VITAMIN D [Concomitant]
     Active Substance: VITAMIN D NOS

REACTIONS (2)
  - Blood pressure systolic increased [Unknown]
  - Heart rate decreased [Unknown]

NARRATIVE: CASE EVENT DATE: 20241107
